FAERS Safety Report 9711428 (Version 2)
Quarter: 2014Q2

REPORT INFORMATION
  Report Type: Spontaneous
  Country: US (occurrence: US)
  Receive Date: 20131126
  Receipt Date: 20140510
  Transmission Date: 20141212
  Serious: No
  Sender: FDA-Public Use
  Company Number: US-BRISTOL-MYERS SQUIBB COMPANY-19397058

PATIENT
  Age: 48 Year
  Sex: Female
  Weight: 107.48 kg

DRUGS (2)
  1. BYETTA PEN DISPOSABLE [Suspect]
     Indication: TYPE 2 DIABETES MELLITUS
     Dates: start: 201304
  2. METFORMIN [Concomitant]
     Dosage: 1DF:100 UNITS NOS

REACTIONS (4)
  - Product quality issue [Unknown]
  - Drug dose omission [Unknown]
  - Abdominal discomfort [Unknown]
  - Flatulence [Unknown]
